FAERS Safety Report 16907371 (Version 1)
Quarter: 2019Q4

REPORT INFORMATION
  Report Type: Report from Study
  Country: CA (occurrence: CA)
  Receive Date: 20191011
  Receipt Date: 20191011
  Transmission Date: 20200122
  Serious: Yes (Other)
  Sender: FDA-Public Use
  Company Number: CA-GLAXOSMITHKLINE-CA2019GSK181440

PATIENT

DRUGS (3)
  1. ACYCLOVIR. [Suspect]
     Active Substance: ACYCLOVIR
     Indication: HERPES SIMPLEX
     Dosage: UNK
  2. ACYCLOVIR. [Suspect]
     Active Substance: ACYCLOVIR
     Indication: ANTIVIRAL TREATMENT
  3. ACYCLOVIR. [Suspect]
     Active Substance: ACYCLOVIR
     Indication: CENTRAL NERVOUS SYSTEM VIRAL INFECTION

REACTIONS (3)
  - Infantile spasms [Unknown]
  - Disease recurrence [Unknown]
  - Central nervous system infection [Unknown]
